FAERS Safety Report 9640373 (Version 1)
Quarter: 2013Q4

REPORT INFORMATION
  Report Type: Spontaneous
  Country: HU (occurrence: HU)
  Receive Date: 20131023
  Receipt Date: 20131023
  Transmission Date: 20140711
  Serious: Yes (Other)
  Sender: FDA-Public Use
  Company Number: HU-VERTEX PHARMACEUTICALS INC-2013-010573

PATIENT
  Age: 54 Year
  Sex: Female

DRUGS (3)
  1. INCIVO [Suspect]
     Indication: HEPATITIS C
     Route: 065
  2. INTERFERON [Suspect]
     Indication: HEPATITIS C
     Dosage: UNK
     Route: 065
  3. RIBAVIRIN [Concomitant]
     Dosage: DOSAGE FORM: UNKNOWN
     Route: 065

REACTIONS (2)
  - Syncope [Unknown]
  - Malaise [Unknown]
